FAERS Safety Report 6635595-0 (Version None)
Quarter: 2010Q1

REPORT INFORMATION
  Report Type: 
  Country: None (occurrence: None)
  Receive Date: 20100315
  Receipt Date: 20090902
  Transmission Date: 20100710
  Serious: Yes (Other)
  Sender: FDA-Public Use
  Company Number: GB-MERCK-0908GBR00027

PATIENT
  Age: 78 Year
  Sex: Male
  Weight: 75 kg

DRUGS (6)
  1. JANUVIA [Suspect]
     Indication: TYPE 2 DIABETES MELLITUS
     Route: 048
     Dates: start: 20090701
  2. BETAXOLOL HYDROCHLORIDE [Concomitant]
     Indication: GLAUCOMA
     Route: 047
     Dates: start: 20010101
  3. POLYETHYLENE GLYCOL [Concomitant]
     Indication: CONSTIPATION
     Route: 065
     Dates: start: 20050101
  4. OLMESARTAN MEDOXOMIL [Concomitant]
     Indication: TYPE 2 DIABETES MELLITUS
     Route: 065
     Dates: start: 20060101
  5. AMLODIPINE [Concomitant]
     Indication: BLOOD PRESSURE
     Route: 065
     Dates: start: 20070101
  6. LANSOPRAZOLE [Concomitant]
     Indication: OESOPHAGEAL DISORDER
     Route: 065
     Dates: start: 19990101

REACTIONS (2)
  - DYSPNOEA EXERTIONAL [None]
  - OTITIS EXTERNA [None]
